FAERS Safety Report 13183271 (Version 1)
Quarter: 2017Q1

REPORT INFORMATION
  Report Type: Report from Study
  Country: US (occurrence: US)
  Receive Date: 20170203
  Receipt Date: 20170203
  Transmission Date: 20170428
  Serious: Yes (Other)
  Sender: FDA-Public Use
  Company Number: US-REGENERON PHARMACEUTICALS, INC.-2017-11216

PATIENT

DRUGS (2)
  1. EYLEA [Suspect]
     Active Substance: AFLIBERCEPT
     Indication: MACULAR DEGENERATION
     Dosage: 2 MG MILLIGRAM(S)/0.05 ML, EVERY 4 WEEKS MONTHLY FOR THE FIRST 3 MONTHS
     Dates: start: 2012
  2. EYLEA [Suspect]
     Active Substance: AFLIBERCEPT
     Dosage: 2 MG MILLIGRAM(S)/0.05 ML, ONCE EVERY 8 WEEKS (2 MONTHS)
     Dates: start: 20160603

REACTIONS (3)
  - Costochondritis [Unknown]
  - Cardiac ablation [Unknown]
  - Myocardial ischaemia [Unknown]

NARRATIVE: CASE EVENT DATE: 20161215
